FAERS Safety Report 9512042 (Version 3)
Quarter: 2014Q1

REPORT INFORMATION
  Report Type: Spontaneous
  Country: JP (occurrence: JP)
  Receive Date: 20130910
  Receipt Date: 20140204
  Transmission Date: 20141002
  Serious: Yes (Other)
  Sender: FDA-Public Use
  Company Number: JP-PFIZER INC-2013258725

PATIENT
  Age: 46 Year
  Sex: Male

DRUGS (3)
  1. CELECOX [Suspect]
     Dosage: 100 MG, 2X/DAY
     Route: 048
     Dates: start: 20130905
  2. LYRICA [Suspect]
     Dosage: UNK
     Route: 048
     Dates: start: 20130905
  3. MUCOSTA [Concomitant]
     Dosage: 200 MG, DAILY
     Route: 048
     Dates: start: 20130905

REACTIONS (1)
  - Generalised erythema [Recovered/Resolved]
